FAERS Safety Report 7163529-1 (Version None)
Quarter: 2010Q4

REPORT INFORMATION
  Report Type: 
  Country: None (occurrence: None)
  Receive Date: 20101215
  Receipt Date: 20100504
  Transmission Date: 20110411
  Serious: Yes (Other)
  Sender: FDA-Public Use
  Company Number: US-PFIZER INC-2010007208

PATIENT
  Sex: Female
  Weight: 65.76 kg

DRUGS (10)
  1. LYRICA [Suspect]
     Indication: FIBROMYALGIA
     Dosage: 75 MG, 2X/DAY
     Route: 048
     Dates: start: 20100101
  2. LYRICA [Suspect]
     Indication: PAIN IN EXTREMITY
     Dosage: 75 MG, 1X/DAY
     Route: 048
     Dates: start: 20100101, end: 20100114
  3. DILANTIN [Concomitant]
     Indication: CONVULSION
     Dosage: UNK
  4. LORTAB [Concomitant]
     Indication: BACK INJURY
     Dosage: 10/500MG
  5. LORTAB [Concomitant]
     Indication: BACK PAIN
  6. LORTAB [Concomitant]
     Indication: PAIN
  7. XANAX [Concomitant]
     Indication: ANXIETY
     Dosage: UNK
  8. XANAX [Concomitant]
     Indication: POST-TRAUMATIC STRESS DISORDER
  9. SOMA [Concomitant]
     Indication: MYALGIA
     Dosage: UNK
  10. SOMA [Concomitant]
     Indication: PAIN

REACTIONS (3)
  - DYSPNOEA [None]
  - HYPOVENTILATION [None]
  - PALPITATIONS [None]
